FAERS Safety Report 22625948 (Version 2)
Quarter: 2025Q1

REPORT INFORMATION
  Report Type: Spontaneous
  Country: SE (occurrence: SE)
  Receive Date: 20230621
  Receipt Date: 20250311
  Transmission Date: 20250409
  Serious: Yes (Hospitalization)
  Sender: CSL BEHRING
  Company Number: None

PATIENT
  Age: 36 Year
  Sex: Female
  Weight: 63 kg

DRUGS (3)
  1. PRIVIGEN [Suspect]
     Active Substance: HUMAN IMMUNOGLOBULIN G
     Indication: Immune thrombocytopenia
     Dosage: 400 MILLILITER, QD
     Route: 042
     Dates: start: 20230531, end: 20230601
  2. PRIVIGEN [Suspect]
     Active Substance: HUMAN IMMUNOGLOBULIN G
     Indication: Antiphospholipid syndrome
  3. PARACETAMOL EQL PHARMA [Concomitant]
     Dosage: 500 MILLIGRAM, QID
     Route: 048
     Dates: start: 20230601, end: 20230603

REACTIONS (8)
  - Chills [Recovered/Resolved]
  - Presyncope [Recovering/Resolving]
  - Dizziness [Recovering/Resolving]
  - Pyrexia [Recovered/Resolved]
  - Nausea [Recovering/Resolving]
  - Headache [Recovering/Resolving]
  - Vomiting [Recovered/Resolved]
  - Off label use [Unknown]

NARRATIVE: CASE EVENT DATE: 20230601
